FAERS Safety Report 18898754 (Version 1)
Quarter: 2021Q1

REPORT INFORMATION
  Report Type: Spontaneous
  Country: US (occurrence: US)
  Receive Date: 20210215
  Receipt Date: 20210215
  Transmission Date: 20210420
  Serious: No
  Sender: FDA-Public Use
  Company Number: None

PATIENT
  Age: 73 Year
  Sex: Male
  Weight: 63.6 kg

DRUGS (5)
  1. GOCOVRI 137MG 2 CAPS HS [Concomitant]
  2. NUPLAZID [Suspect]
     Active Substance: PIMAVANSERIN TARTRATE
     Indication: DEMENTIA
     Route: 048
     Dates: start: 20201207, end: 20210208
  3. RYTARY 48.75?195 ER AS DIRECTED [Concomitant]
  4. NUPLAZID [Suspect]
     Active Substance: PIMAVANSERIN TARTRATE
     Indication: PARKINSON^S DISEASE
     Route: 048
     Dates: start: 20201207, end: 20210208
  5. NEUPRO 8MG/24HR ? 1 PTCH DAILY [Concomitant]

REACTIONS (2)
  - Peripheral swelling [None]
  - Condition aggravated [None]

NARRATIVE: CASE EVENT DATE: 20210208
